FAERS Safety Report 7388759-5 (Version None)
Quarter: 2011Q2

REPORT INFORMATION
  Report Type: 
  Country: None (occurrence: None)
  Receive Date: 20110401
  Receipt Date: 20110325
  Transmission Date: 20111010
  Serious: Yes (Hospitalization, Other)
  Sender: FDA-Public Use
  Company Number: IE-JNJFOC-20101205857

PATIENT
  Sex: Female

DRUGS (4)
  1. ZYPREXA [Suspect]
     Indication: PSYCHOTIC DISORDER
     Route: 048
  2. ZYPREXA [Suspect]
     Route: 048
  3. RISPERIDONE [Suspect]
     Indication: DEPRESSION
     Route: 048
  4. RISPERIDONE [Suspect]
     Indication: PSYCHOTIC DISORDER
     Route: 048

REACTIONS (4)
  - DYSARTHRIA [None]
  - DYSKINESIA [None]
  - GASTROINTESTINAL DISORDER [None]
  - ISCHAEMIA [None]
